FAERS Safety Report 22314508 (Version 1)
Quarter: 2023Q2

REPORT INFORMATION
  Report Type: Other
  Country: TH (occurrence: TH)
  Receive Date: 20230512
  Receipt Date: 20230512
  Transmission Date: 20230721
  Serious: Yes (Other)
  Sender: FDA-Public Use
  Company Number: TH-BoehringerIngelheim-2023-BI-235612

PATIENT
  Age: 69 Year
  Sex: Male

DRUGS (2)
  1. ALTEPLASE [Suspect]
     Active Substance: ALTEPLASE
     Indication: Retinal artery occlusion
     Route: 013
  2. NIMODIPINE [Concomitant]
     Active Substance: NIMODIPINE
     Indication: Retinal artery occlusion
     Route: 013

REACTIONS (2)
  - Drug ineffective [Unknown]
  - No adverse event [Unknown]
